FAERS Safety Report 6134653-7 (Version None)
Quarter: 2009Q1

REPORT INFORMATION
  Report Type: 
  Country: None (occurrence: None)
  Receive Date: 20090327
  Receipt Date: 20090320
  Transmission Date: 20090719
  Serious: Yes (Hospitalization)
  Sender: FDA-Public Use
  Company Number: PHHY2009CA10619

PATIENT
  Sex: Female
  Weight: 43 kg

DRUGS (1)
  1. EXJADE [Suspect]
     Indication: MYELOFIBROSIS
     Dosage: 2000 MG, UNK
     Route: 048
     Dates: start: 20090122

REACTIONS (1)
  - GENERAL PHYSICAL HEALTH DETERIORATION [None]
